FAERS Safety Report 9184002 (Version 1)
Quarter: 2012Q4

REPORT INFORMATION
  Report Type: 
  Country: US (occurrence: US)
  Receive Date: 20121031
  Receipt Date: 20121031
  Transmission Date: 20130627
  Serious: Yes (Other)
  Sender: FDA-Public Use
  Company Number: PHEH2012US021035

PATIENT

DRUGS (2)
  1. GLEEVEC [Suspect]
     Indication: GASTROINTESTINAL STROMAL TUMOUR
     Dosage: 400 mg, UNK
  2. GLEEVEC [Suspect]
     Dosage: 800 mg, UNK

REACTIONS (2)
  - Plasma cell myeloma [Unknown]
  - Second primary malignancy [Unknown]
